FAERS Safety Report 9919202 (Version 4)
Quarter: 2014Q2

REPORT INFORMATION
  Report Type: Report from Study
  Country: CA (occurrence: CA)
  Receive Date: 20140224
  Receipt Date: 20140416
  Transmission Date: 20141212
  Serious: Yes (Hospitalization, Other)
  Sender: FDA-Public Use
  Company Number: CA-JNJFOC-20140118801

PATIENT
  Age: 45 Year
  Sex: Male
  Weight: 90 kg

DRUGS (3)
  1. REMICADE [Suspect]
     Indication: CROHN^S DISEASE
     Route: 042
     Dates: start: 20100513
  2. REMICADE [Suspect]
     Indication: CROHN^S DISEASE
     Dosage: 5 MG/KG
     Route: 042
     Dates: start: 20100101
  3. FOSAMAX [Concomitant]
     Route: 065

REACTIONS (2)
  - Small intestinal resection [Recovering/Resolving]
  - Post procedural infection [Unknown]
